FAERS Safety Report 9388055 (Version 1)
Quarter: 2013Q3

REPORT INFORMATION
  Report Type: Spontaneous
  Country: US (occurrence: None)
  Receive Date: 20130703
  Receipt Date: 20130703
  Transmission Date: 20140515
  Serious: Yes (Hospitalization)
  Sender: FDA-Public Use
  Company Number: DSU-2013-03818

PATIENT
  Age: 63 Year
  Sex: Female
  Weight: 68.04 kg

DRUGS (5)
  1. WELCHOL [Suspect]
     Indication: HYPERCHOLESTEROLAEMIA
     Dosage: 3.75 GM (3.75 G, QD), PER ORAL
     Route: 048
     Dates: start: 2011
  2. WELCHOL [Suspect]
     Indication: DIARRHOEA
     Dosage: 3.75 GM (3.75 G, QD), PER ORAL
     Route: 048
     Dates: start: 2011
  3. ZOLOFT [Concomitant]
  4. XANAX [Suspect]
  5. ATORVASTATIN (ATORVASTATIN) [Suspect]

REACTIONS (4)
  - Mitral valve incompetence [None]
  - Diarrhoea [None]
  - Product taste abnormal [None]
  - Product quality issue [None]
